FAERS Safety Report 6745368-6 (Version None)
Quarter: 2010Q2

REPORT INFORMATION
  Report Type: 
  Country: None (occurrence: None)
  Receive Date: 20100528
  Receipt Date: 20100519
  Transmission Date: 20101027
  Serious: No
  Sender: FDA-Public Use
  Company Number: US-BIOGENIDEC-2010BI016416

PATIENT
  Age: 62 Year
  Sex: Female

DRUGS (4)
  1. AVONEX [Suspect]
     Indication: MULTIPLE SCLEROSIS
     Route: 030
     Dates: start: 20001001, end: 20030830
  2. AVONEX [Suspect]
     Route: 030
     Dates: start: 20030830
  3. LANTUS [Concomitant]
     Indication: DIABETES MELLITUS
     Route: 058
  4. LANTUS [Concomitant]
     Route: 058

REACTIONS (4)
  - APHASIA [None]
  - BLOOD GLUCOSE DECREASED [None]
  - CONFUSIONAL STATE [None]
  - SLUGGISHNESS [None]
